FAERS Safety Report 24967604 (Version 1)
Quarter: 2025Q1

REPORT INFORMATION
  Report Type: Spontaneous
  Country: CA (occurrence: CA)
  Receive Date: 20250214
  Receipt Date: 20250214
  Transmission Date: 20250409
  Serious: Yes (Other)
  Sender: CSL BEHRING
  Company Number: CA-BEH-2025195465

PATIENT
  Age: 28 Year
  Sex: Male

DRUGS (2)
  1. HUMAN IMMUNOGLOBULIN G [Suspect]
     Active Substance: HUMAN IMMUNOGLOBULIN G
     Indication: Product used for unknown indication
     Route: 042
  2. HUMAN IMMUNOGLOBULIN G [Suspect]
     Active Substance: HUMAN IMMUNOGLOBULIN G
     Route: 042

REACTIONS (11)
  - Arrhythmia [Unknown]
  - Chills [Unknown]
  - Dyspnoea [Unknown]
  - Erythema [Unknown]
  - Flank pain [Unknown]
  - Headache [Unknown]
  - Infusion related hypersensitivity reaction [Unknown]
  - Nausea [Unknown]
  - Rash [Unknown]
  - Tachycardia [Unknown]
  - Vomiting [Unknown]
